FAERS Safety Report 5372349-X (Version None)
Quarter: 2007Q2

REPORT INFORMATION
  Report Type: 
  Country: None (occurrence: None)
  Receive Date: 20070620
  Receipt Date: 20070402
  Transmission Date: 20071010
  Serious: No
  Sender: FDA-Public Use
  Company Number: 2007RL000152

PATIENT
  Age: 65 Year
  Sex: Female

DRUGS (2)
  1. OMACOR [Suspect]
     Indication: DRY EYE
     Dosage: 1 GM;BID;PO
     Route: 048
     Dates: start: 20070101
  2. CALCIUM CHLORIDE [Concomitant]

REACTIONS (3)
  - ABDOMINAL PAIN UPPER [None]
  - NAUSEA [None]
  - OFF LABEL USE [None]
